FAERS Safety Report 8010848-2 (Version None)
Quarter: 2011Q4

REPORT INFORMATION
  Report Type: 
  Country: None (occurrence: None)
  Receive Date: 20111228
  Receipt Date: 20111220
  Transmission Date: 20120403
  Serious: Yes (Disabling)
  Sender: FDA-Public Use
  Company Number: PHHY2011GB110664

PATIENT
  Age: 63 Year
  Sex: Female
  Weight: 66.4 kg

DRUGS (6)
  1. CO-DANTHRAMER [Concomitant]
  2. DOCUSATE SODIUM [Concomitant]
  3. TOPOTECAN [Suspect]
     Dosage: 2.5 MG, UNK
     Route: 042
     Dates: start: 20111019, end: 20111118
  4. SUMATRIPTAN [Concomitant]
  5. DOMPERIDONE [Concomitant]
  6. LEVOTHYROXINE SODIUM [Concomitant]

REACTIONS (5)
  - PHOTOPSIA [None]
  - SCOTOMA [None]
  - HEADACHE [None]
  - HALLUCINATION, VISUAL [None]
  - VISUAL IMPAIRMENT [None]
